FAERS Safety Report 17656327 (Version 2)
Quarter: 2020Q3

REPORT INFORMATION
  Report Type: Spontaneous
  Country: US (occurrence: US)
  Receive Date: 20200410
  Receipt Date: 20200828
  Transmission Date: 20201102
  Serious: Yes (Other)
  Sender: FDA-Public Use
  Company Number: US-SA-2018SA131073

PATIENT

DRUGS (1)
  1. AUBAGIO [Suspect]
     Active Substance: TERIFLUNOMIDE
     Indication: MULTIPLE SCLEROSIS
     Dosage: 7 MG, QD
     Route: 048
     Dates: start: 20180201

REACTIONS (7)
  - Hallucination [Unknown]
  - Hallucination, auditory [Unknown]
  - Diplopia [Recovering/Resolving]
  - Affect lability [Unknown]
  - Confusional state [Unknown]
  - Urinary incontinence [Unknown]
  - Seizure [Unknown]

NARRATIVE: CASE EVENT DATE: 2018
